FAERS Safety Report 10911081 (Version 1)
Quarter: 2015Q1

REPORT INFORMATION
  Report Type: Spontaneous
  Country: US (occurrence: US)
  Receive Date: 20150312
  Receipt Date: 20150312
  Transmission Date: 20150721
  Serious: No
  Sender: FDA-Public Use
  Company Number: US-GLAXOSMITHKLINE-US2015GSK025038

PATIENT
  Sex: Female

DRUGS (5)
  1. VENTOLIN HFA [Suspect]
     Active Substance: ALBUTEROL SULFATE
     Indication: ASTHMA
     Dosage: 1 PUFF(S), PRN
     Route: 055
  2. DUEXIS [Suspect]
     Active Substance: FAMOTIDINE\IBUPROFEN
     Indication: JOINT SWELLING
  3. ADVAIR DISKUS [Suspect]
     Active Substance: FLUTICASONE PROPIONATE\SALMETEROL XINAFOATE
     Indication: ASTHMA
     Dosage: 1 PUFF(S), BID
     Route: 055
  4. DUEXIS [Suspect]
     Active Substance: FAMOTIDINE\IBUPROFEN
     Indication: ARTHRALGIA
     Dosage: UNK, U
  5. PREDNISONE. [Concomitant]
     Active Substance: PREDNISONE

REACTIONS (7)
  - Dyspnoea [Not Recovered/Not Resolved]
  - Soft tissue injury [Recovering/Resolving]
  - Fall [Recovered/Resolved with Sequelae]
  - Ligament rupture [Recovering/Resolving]
  - Intentional product use issue [Unknown]
  - Tremor [Not Recovered/Not Resolved]
  - Joint swelling [Not Recovered/Not Resolved]
